FAERS Safety Report 7249571-0 (Version None)
Quarter: 2011Q1

REPORT INFORMATION
  Report Type: 
  Country: None (occurrence: None)
  Receive Date: 20110128
  Receipt Date: 20101215
  Transmission Date: 20110831
  Serious: Yes (Hospitalization, Other)
  Sender: FDA-Public Use
  Company Number: US-BAYER-201024041NA

PATIENT
  Sex: Female
  Weight: 54.422 kg

DRUGS (8)
  1. YASMIN [Suspect]
     Indication: CONTRACEPTION
     Dosage: UNK, QD
     Dates: start: 20061127, end: 20070724
  2. MULTI-VITAMIN [Concomitant]
     Dosage: UNK UNK, IRR
  3. LOVENOX [Concomitant]
     Dosage: UNK
     Dates: start: 20080301, end: 20090201
  4. YASMIN [Suspect]
     Indication: ACNE
     Dosage: UNK UNK, QD
     Route: 048
     Dates: start: 20031201, end: 20050608
  5. NSAID'S [Concomitant]
  6. OCELLA [Suspect]
     Indication: PRODUCT USED FOR UNKNOWN INDICATION
     Route: 048
     Dates: start: 20061201, end: 20070901
  7. HEPARIN [Concomitant]
     Dosage: UNK
     Dates: start: 20081201
  8. YAZ [Suspect]
     Indication: PRODUCT USED FOR UNKNOWN INDICATION
     Route: 048
     Dates: start: 20061201, end: 20070901

REACTIONS (5)
  - BILIARY COLIC [None]
  - CHOLECYSTITIS CHRONIC [None]
  - GALLBLADDER CHOLESTEROLOSIS [None]
  - BILIARY DYSKINESIA [None]
  - ABDOMINAL PAIN UPPER [None]
